FAERS Safety Report 9537874 (Version 1)
Quarter: 2013Q3

REPORT INFORMATION
  Report Type: Spontaneous
  Country: US (occurrence: US)
  Receive Date: 20130919
  Receipt Date: 20130919
  Transmission Date: 20140515
  Serious: Yes (Other)
  Sender: FDA-Public Use
  Company Number: CHPA2013US014148

PATIENT
  Age: 55 Year
  Sex: Female

DRUGS (1)
  1. GAS-X UNKNOWN [Suspect]
     Indication: FLATULENCE
     Dosage: 1 DF, PRN
     Route: 048

REACTIONS (1)
  - Panic attack [Recovered/Resolved]
